FAERS Safety Report 8385860 (Version 2)
Quarter: 2012Q4

REPORT INFORMATION
  Report Type: 
  Country: CA (occurrence: CA)
  Receive Date: 20120202
  Receipt Date: 20120828
  Transmission Date: 20130627
  Serious: Yes (Hospitalization)
  Sender: FDA-Public Use
  Company Number: PHHY2012CA001160

PATIENT
  Sex: Male

DRUGS (3)
  1. SANDOSTATIN LAR [Suspect]
     Indication: METASTATIC CARCINOID TUMOUR
     Dosage: 30 mg, QMO
     Route: 030
     Dates: start: 20090521, end: 20111229
  2. AFINITOR [Suspect]
     Indication: METASTATIC CARCINOID TUMOUR
     Dosage: 10 mg, every day
     Route: 048
     Dates: start: 20120106, end: 20120119
  3. CHEMOTHERAPEUTICS FOR TOPICAL USE [Concomitant]

REACTIONS (3)
  - Blood glucose fluctuation [Unknown]
  - Hypoglycaemia [Not Recovered/Not Resolved]
  - Night sweats [Unknown]
